FAERS Safety Report 6644280-0 (Version None)
Quarter: 2010Q1

REPORT INFORMATION
  Report Type: 
  Country: None (occurrence: None)
  Receive Date: 20100319
  Receipt Date: 20100319
  Transmission Date: 20100710
  Serious: Yes (Hospitalization)
  Sender: FDA-Public Use
  Company Number: None

PATIENT
  Age: 88 Year
  Weight: 102 kg

DRUGS (7)
  1. COUMADIN [Suspect]
     Indication: CORONARY ARTERY DISEASE
     Dosage: 2MG DAILY PO CHRONIC
     Route: 048
  2. ASPIRIN [Suspect]
     Indication: CORONARY ARTERY DISEASE
     Dosage: PO CHRONIC
     Route: 048
  3. METOPROLOL SUCCINATE [Concomitant]
  4. INDAPAMIDE [Concomitant]
  5. SIMVASTIN [Concomitant]
  6. PRILOSEC [Concomitant]
  7. EXTRA STRENGTH TYLENOL [Concomitant]

REACTIONS (3)
  - FALL [None]
  - HAEMORRHAGE INTRACRANIAL [None]
  - SUBDURAL HAEMATOMA [None]
